FAERS Safety Report 5283749-0 (Version None)
Quarter: 2007Q1

REPORT INFORMATION
  Report Type: 
  Country: None (occurrence: None)
  Receive Date: 20061226
  Receipt Date: 20061004
  Transmission Date: 20070707
  Serious: Yes (Hospitalization, Other)
  Sender: FDA-Public Use
  Company Number: WAES 0610USA03630

PATIENT
  Age: 80 Year
  Sex: Female

DRUGS (2)
  1. ZETIA [Suspect]
     Dosage: PO
     Route: 048
     Dates: start: 20060101, end: 20060101
  2. STATIN (UNSPECIFIED) [Concomitant]

REACTIONS (1)
  - PANCREATITIS ACUTE [None]
